FAERS Safety Report 18671148 (Version 1)
Quarter: 2020Q4

REPORT INFORMATION
  Report Type: Spontaneous
  Country: US (occurrence: US)
  Receive Date: 20201228
  Receipt Date: 20201228
  Transmission Date: 20210114
  Serious: Yes (Other)
  Sender: FDA-Public Use
  Company Number: US-PFIZER INC-2020502834

PATIENT
  Age: 61 Year
  Sex: Female
  Weight: 71.67 kg

DRUGS (3)
  1. ZOLOFT [Suspect]
     Active Substance: SERTRALINE HYDROCHLORIDE
     Indication: DEPRESSION
     Dosage: 125 MG
  2. ZOLOFT [Suspect]
     Active Substance: SERTRALINE HYDROCHLORIDE
     Dosage: 112.5 MG
     Dates: start: 202004
  3. ZOLOFT [Suspect]
     Active Substance: SERTRALINE HYDROCHLORIDE
     Indication: ANXIETY
     Dosage: 100 MG, DAILY
     Route: 048

REACTIONS (12)
  - Iritis [Unknown]
  - Fatigue [Unknown]
  - Toothache [Unknown]
  - Tooth disorder [Unknown]
  - Alveolar osteitis [Unknown]
  - Intentional product misuse [Unknown]
  - Hypertension [Unknown]
  - Blepharitis [Unknown]
  - Meibomian gland dysfunction [Unknown]
  - Diabetes mellitus [Unknown]
  - Eye disorder [Unknown]
  - Dry eye [Unknown]

NARRATIVE: CASE EVENT DATE: 2020
